FAERS Safety Report 15928461 (Version 3)
Quarter: 2019Q3

REPORT INFORMATION
  Report Type: Report from Study
  Country: US (occurrence: US)
  Receive Date: 20190206
  Receipt Date: 20190725
  Transmission Date: 20191004
  Serious: Yes (Life-Threatening, Hospitalization, Disabling)
  Sender: FDA-Public Use
  Company Number: US-SA-2019SA028647

PATIENT
  Age: 70 Year
  Sex: Male

DRUGS (3)
  1. INSULIN GLARGINE [Suspect]
     Active Substance: INSULIN GLARGINE
     Indication: TYPE 2 DIABETES MELLITUS
     Dosage: 35 IU, BID
     Route: 058
  2. INSULIN GLARGINE [Suspect]
     Active Substance: INSULIN GLARGINE
     Dosage: 28 U, QD
     Route: 058
  3. NOVOLOG [Concomitant]
     Active Substance: INSULIN ASPART
     Indication: DIABETES MELLITUS

REACTIONS (8)
  - Gait inability [Unknown]
  - Haemorrhagic stroke [Recovered/Resolved]
  - Inappropriate schedule of product administration [Unknown]
  - Arteriovenous fistula [Unknown]
  - Hemiplegia [Unknown]
  - Blindness unilateral [Unknown]
  - Wrong technique in product usage process [Unknown]
  - Wheelchair user [Unknown]

NARRATIVE: CASE EVENT DATE: 20180603
